FAERS Safety Report 4600172-X (Version None)
Quarter: 2005Q1

REPORT INFORMATION
  Report Type: 
  Country: None (occurrence: None)
  Receive Date: 20050302
  Receipt Date: 20050302
  Transmission Date: 20050727
  Serious: Yes (Disabling)
  Sender: FDA-Public Use
  Company Number: None

PATIENT
  Age: 51 Year
  Sex: Male
  Weight: 86 kg

DRUGS (8)
  1. PEGASYS [Suspect]
     Indication: HEPATITIS C
     Dosage: 180 MCG SQ PER WEEK
     Route: 058
     Dates: start: 20040902
  2. COPEGUS [Suspect]
     Indication: HEPATITIS C
     Dosage: 600 MG PO TWICE A DAY
     Route: 048
     Dates: start: 20040902
  3. AMBIEN [Concomitant]
  4. NEXIUM [Concomitant]
  5. HYDROCHLOROTHIAZIDE [Concomitant]
  6. CIALIS [Concomitant]
  7. ZOLOFT [Concomitant]
  8. METAGLIP [Concomitant]

REACTIONS (4)
  - EAR PAIN [None]
  - HYPOACUSIS [None]
  - TEMPOROMANDIBULAR JOINT SYNDROME [None]
  - TINNITUS [None]
